FAERS Safety Report 18695694 (Version 1)
Quarter: 2021Q1

REPORT INFORMATION
  Report Type: Spontaneous
  Country: CN (occurrence: CN)
  Receive Date: 20210104
  Receipt Date: 20210104
  Transmission Date: 20210419
  Serious: Yes (Other)
  Sender: FDA-Public Use
  Company Number: CN-PFIZER INC-2020514475

PATIENT
  Age: 58 Year
  Sex: Male
  Weight: 65 kg

DRUGS (4)
  1. SODIUM CHLORIDE. [Concomitant]
     Active Substance: SODIUM CHLORIDE
     Indication: VEHICLE SOLUTION USE
     Dosage: 1.000 ML, 2X/DAY
     Route: 058
     Dates: start: 20201210, end: 20201217
  2. STERILIZED WATER FOR INJECTIONS [Concomitant]
     Indication: VEHICLE SOLUTION USE
     Dosage: 20.00000 ML, 1X/DAY
     Dates: start: 20201210, end: 20201211
  3. CYTARABINE. [Suspect]
     Active Substance: CYTARABINE
     Indication: CHEMOTHERAPY
     Dosage: 0.085 G, 2X/DAY
     Route: 058
     Dates: start: 20201210, end: 20201217
  4. AI NUO NING [Concomitant]
     Active Substance: IDARUBICIN HYDROCHLORIDE
     Indication: CHEMOTHERAPY
     Dosage: 20.000 MG, 1X/DAY
     Dates: start: 20201210, end: 20201211

REACTIONS (3)
  - Rash [Recovering/Resolving]
  - Rash erythematous [Recovering/Resolving]
  - Rash papular [Recovering/Resolving]

NARRATIVE: CASE EVENT DATE: 20201219
